FAERS Safety Report 10235210 (Version 1)
Quarter: 2014Q2

REPORT INFORMATION
  Report Type: Spontaneous
  Country: GB (occurrence: GB)
  Receive Date: 20140613
  Receipt Date: 20140613
  Transmission Date: 20141212
  Serious: Yes (Death)
  Sender: FDA-Public Use
  Company Number: GB-ROCHE-1413433

PATIENT
  Age: 71 Year
  Sex: Female

DRUGS (7)
  1. ZELBORAF [Suspect]
     Indication: MALIGNANT MELANOMA
     Route: 048
     Dates: start: 20140506, end: 20140518
  2. DEXAMETHASONE [Concomitant]
     Route: 065
  3. MELATONIN [Concomitant]
     Route: 065
  4. ORAMORPH [Concomitant]
     Route: 065
  5. OMEPRAZOLE [Concomitant]
     Route: 065
  6. PARACETAMOL [Concomitant]
     Route: 065
  7. ZOPICLONE [Concomitant]
     Route: 065

REACTIONS (2)
  - Cerebral haemorrhage [Fatal]
  - Skin reaction [Unknown]
